FAERS Safety Report 7513262-9 (Version None)
Quarter: 2011Q2

REPORT INFORMATION
  Report Type: 
  Country: None (occurrence: None)
  Receive Date: 20110531
  Receipt Date: 20110421
  Transmission Date: 20111010
  Serious: Yes (Hospitalization, Other)
  Sender: FDA-Public Use
  Company Number: US-BAYER-201030310NA

PATIENT
  Age: 23 Year
  Sex: Female
  Weight: 77.56 kg

DRUGS (1)
  1. YASMIN [Suspect]
     Indication: PRODUCT USED FOR UNKNOWN INDICATION
     Dates: start: 20061201

REACTIONS (8)
  - PROCEDURAL VOMITING [None]
  - HYPERTROPHIC SCAR [None]
  - ABDOMINAL PAIN UPPER [None]
  - GALLBLADDER INJURY [None]
  - BILIARY DYSKINESIA [None]
  - CHOLECYSTITIS CHRONIC [None]
  - PROCEDURAL NAUSEA [None]
  - CHOLELITHIASIS [None]
